FAERS Safety Report 21594766 (Version 9)
Quarter: 2023Q4

REPORT INFORMATION
  Report Type: Other
  Country: CA (occurrence: None)
  Receive Date: 20221115
  Receipt Date: 20231128
  Transmission Date: 20240110
  Serious: No
  Sender: FDA-Public Use
  Company Number: CA-ROCHE-3218792

PATIENT
  Sex: Female

DRUGS (3)
  1. OCREVUS [Suspect]
     Active Substance: OCRELIZUMAB
     Indication: Relapsing-remitting multiple sclerosis
     Dosage: MORE DOSAGE INFORMATION IS 300 MG AT DAY 0 AND 14, THEN 600 MG EVERY 6 MONTH
     Route: 042
     Dates: start: 20211207
  2. MODERNA COVID-19 VACCINE [Suspect]
     Active Substance: ELASOMERAN
     Indication: Product used for unknown indication
     Route: 065
  3. BACLOFEN [Suspect]
     Active Substance: BACLOFEN
     Indication: Product used for unknown indication
     Route: 065

REACTIONS (16)
  - COVID-19 [Recovered/Resolved]
  - Vision blurred [Not Recovered/Not Resolved]
  - Swelling [Not Recovered/Not Resolved]
  - Nausea [Not Recovered/Not Resolved]
  - Allergy to vaccine [Unknown]
  - Hypoaesthesia [Unknown]
  - Fall [Unknown]
  - Contusion [Unknown]
  - Brain fog [Not Recovered/Not Resolved]
  - Memory impairment [Unknown]
  - Anxiety [Unknown]
  - Depression [Unknown]
  - Headache [Unknown]
  - Somnolence [Unknown]
  - Myalgia [Unknown]
  - Pruritus [Unknown]
